FAERS Safety Report 21105145 (Version 3)
Quarter: 2022Q3

REPORT INFORMATION
  Report Type: Report from Study
  Country: US (occurrence: US)
  Receive Date: 20220720
  Receipt Date: 20220810
  Transmission Date: 20221027
  Serious: Yes (Hospitalization, Other)
  Sender: FDA-Public Use
  Company Number: US-SA-SAC20220719000166

PATIENT
  Age: 67 Year
  Sex: Male

DRUGS (16)
  1. DUPIXENT [Suspect]
     Active Substance: DUPILUMAB
     Indication: Asthma
     Dosage: 600 MG, 1X
     Route: 058
     Dates: start: 20210512, end: 20210512
  2. DUPIXENT [Suspect]
     Active Substance: DUPILUMAB
     Dosage: 300 MG, QOW
     Route: 058
     Dates: end: 20220628
  3. ASMANEX [Concomitant]
     Active Substance: MOMETASONE FUROATE
     Dosage: 110MCG(30) AER POW BA
  4. SPIRIVA [Concomitant]
     Active Substance: TIOTROPIUM BROMIDE MONOHYDRATE
     Dosage: 18 MCG CAP W/DEV
  5. SYMBICORT [Concomitant]
     Active Substance: BUDESONIDE\FORMOTEROL FUMARATE DIHYDRATE
     Dosage: SYMBICORT 160-4.5MCG HFA AER AD
  6. ALBUTEROL SULFATE [Concomitant]
     Active Substance: ALBUTEROL SULFATE
  7. MORNIFLUMATE [Concomitant]
     Active Substance: MORNIFLUMATE
  8. LEVOTHYROXINE [Concomitant]
     Active Substance: LEVOTHYROXINE
  9. ATORVASTATIN CALCIUM [Concomitant]
     Active Substance: ATORVASTATIN CALCIUM
  10. FAMOTIDINE [Concomitant]
     Active Substance: FAMOTIDINE
  11. OMEPRAZOLE [Concomitant]
     Active Substance: OMEPRAZOLE
  12. POTASSIUM [Concomitant]
     Active Substance: POTASSIUM
     Dosage: 595(99)MG
  13. CYCLOBENZAPRINE HYDROCHLORIDE [Concomitant]
     Active Substance: CYCLOBENZAPRINE HYDROCHLORIDE
  14. LAMOTRIGINE [Concomitant]
     Active Substance: LAMOTRIGINE
  15. CHLORDIAZEPOXIDE HYDROCHLORIDE [Concomitant]
     Active Substance: CHLORDIAZEPOXIDE HYDROCHLORIDE
  16. SEROQUEL [Concomitant]
     Active Substance: QUETIAPINE FUMARATE

REACTIONS (3)
  - Prostate cancer [Unknown]
  - Post procedural sepsis [Recovered/Resolved]
  - Inappropriate schedule of product administration [Unknown]

NARRATIVE: CASE EVENT DATE: 20220627
